FAERS Safety Report 19048579 (Version 1)
Quarter: 2021Q1

REPORT INFORMATION
  Report Type: Spontaneous
  Country: US (occurrence: US)
  Receive Date: 20210323
  Receipt Date: 20210323
  Transmission Date: 20210420
  Serious: Yes (Life-Threatening, Other)
  Sender: FDA-Public Use
  Company Number: US-BAYER-2021-109666

PATIENT
  Age: 18 Year
  Sex: Female

DRUGS (9)
  1. HYDROXYCHLOROQUINE [Suspect]
     Active Substance: HYDROXYCHLOROQUINE
  2. APIXABAN [Suspect]
     Active Substance: APIXABAN
  3. CLOPIDOGREL [Suspect]
     Active Substance: CLOPIDOGREL BISULFATE
  4. RITUXIMAB. [Suspect]
     Active Substance: RITUXIMAB
  5. FONDAPARINUX [Suspect]
     Active Substance: FONDAPARINUX
  6. RIVAROXABAN [Suspect]
     Active Substance: RIVAROXABAN
     Indication: ANTIPHOSPHOLIPID SYNDROME
     Dosage: UNK
     Dates: start: 201611
  7. ENOXAPARIN [Suspect]
     Active Substance: ENOXAPARIN
  8. WARFARIN [Suspect]
     Active Substance: WARFARIN
     Dosage: UNK
     Dates: start: 201611
  9. ACETYLSALICYLIC ACID [Suspect]
     Active Substance: ASPIRIN
     Indication: ANTIPHOSPHOLIPID SYNDROME

REACTIONS (9)
  - Hepatic infarction [None]
  - Product use in unapproved indication [None]
  - Off label use [None]
  - Pelvic venous thrombosis [None]
  - Thrombophlebitis superficial [None]
  - Subclavian vein thrombosis [None]
  - Deep vein thrombosis [None]
  - Pulmonary embolism [Recovered/Resolved]
  - Drug ineffective for unapproved indication [None]
